FAERS Safety Report 4436762-7 (Version None)
Quarter: 2004Q3

REPORT INFORMATION
  Report Type: 
  Country: None (occurrence: None)
  Receive Date: 20040726
  Receipt Date: 20040305
  Transmission Date: 20050211
  Serious: No
  Sender: FDA-Public Use
  Company Number: USA040360974

PATIENT
  Age: 39 Year
  Sex: Female
  Weight: 55 kg

DRUGS (7)
  1. FORTEO [Suspect]
     Indication: OSTEOPENIA
     Dosage: 20 UG/1 DAY
     Dates: start: 20040131
  2. EFFEXOR XR [Concomitant]
  3. VIOXX [Concomitant]
  4. MS CONTIN [Concomitant]
  5. FLONASE [Concomitant]
  6. SENOKOT [Concomitant]
  7. COLACE (DOCUSATE SODIUM) [Concomitant]

REACTIONS (1)
  - ALOPECIA [None]
